FAERS Safety Report 22146847 (Version 1)
Quarter: 2023Q1

REPORT INFORMATION
  Report Type: Report from Study
  Country: IT (occurrence: IT)
  Receive Date: 20230328
  Receipt Date: 20230328
  Transmission Date: 20230418
  Serious: Yes (Death)
  Sender: FDA-Public Use
  Company Number: IT-MYLANLABS-2023M1032746

PATIENT

DRUGS (3)
  1. MITOXANTRONE [Suspect]
     Active Substance: MITOXANTRONE HYDROCHLORIDE
     Indication: Follicular lymphoma
     Dosage: 8 MILLIGRAM/SQ. METER, CYCLE; AS A PART OF R-BM REGIMEN ON DAYS 1
     Route: 065
  2. RITUXIMAB [Suspect]
     Active Substance: RITUXIMAB
     Indication: Follicular lymphoma
     Dosage: 375 MILLIGRAM/SQ. METER, CYCLE; AS A PART OF R-BM REGIMEN ON DAY 1
     Route: 065
  3. BENDAMUSTINE [Suspect]
     Active Substance: BENDAMUSTINE
     Indication: Follicular lymphoma
     Dosage: 90 MILLIGRAM/SQ. METER, CYCLE; AS A PART OF R-BM REGIMEN ON DAYS 1-2
     Route: 065

REACTIONS (3)
  - Infection [Fatal]
  - Condition aggravated [Fatal]
  - Pemphigus [Fatal]
